FAERS Safety Report 7428645-5 (Version None)
Quarter: 2011Q2

REPORT INFORMATION
  Report Type: 
  Country: None (occurrence: None)
  Receive Date: 20110421
  Receipt Date: 20090730
  Transmission Date: 20111010
  Serious: No
  Sender: FDA-Public Use
  Company Number: 2009BI024080

PATIENT
  Sex: Female

DRUGS (1)
  1. TYSABRI [Suspect]
     Indication: MULTIPLE SCLEROSIS
     Route: 042
     Dates: start: 20090501

REACTIONS (8)
  - BURNING SENSATION [None]
  - PARAESTHESIA [None]
  - HYPOAESTHESIA [None]
  - PAIN IN EXTREMITY [None]
  - SPEECH DISORDER [None]
  - MEMORY IMPAIRMENT [None]
  - FATIGUE [None]
  - HEADACHE [None]
